FAERS Safety Report 7293662-5 (Version None)
Quarter: 2011Q1

REPORT INFORMATION
  Report Type: 
  Country: None (occurrence: None)
  Receive Date: 20110215
  Receipt Date: 20110103
  Transmission Date: 20110831
  Serious: Yes (Disabling)
  Sender: FDA-Public Use
  Company Number: B0685873A

PATIENT
  Sex: Male

DRUGS (4)
  1. SIPRALEXA [Concomitant]
  2. ANTIDEPRESSANTS [Concomitant]
  3. RISPERDAL [Concomitant]
  4. LAMBIPOL [Suspect]
     Indication: BIPOLAR DISORDER
     Route: 065
     Dates: start: 20101009

REACTIONS (2)
  - WEIGHT DECREASED [None]
  - DIARRHOEA [None]
